FAERS Safety Report 9688813 (Version 2)
Quarter: 2014Q4

REPORT INFORMATION
  Report Type: Spontaneous
  Country: US (occurrence: US)
  Receive Date: 20131114
  Receipt Date: 20141210
  Transmission Date: 20150529
  Serious: Yes (Hospitalization)
  Sender: FDA-Public Use
  Company Number: US-BAYER-2013-138596

PATIENT
  Age: 38 Year
  Sex: Female

DRUGS (7)
  1. YASMIN [Suspect]
     Active Substance: DROSPIRENONE\ETHINYL ESTRADIOL
     Dosage: UNK
     Route: 048
  2. TYLOX [Concomitant]
     Active Substance: ACETAMINOPHEN\OXYCODONE HYDROCHLORIDE
     Dosage: 1, Q (INTERPRETED AS EVERY) 4 [HOURS] PRN
     Route: 048
  3. ACIPHEX [Concomitant]
     Active Substance: RABEPRAZOLE SODIUM
     Dosage: 20 MG, PRN
  4. ADVIL [Concomitant]
     Active Substance: IBUPROFEN
     Dosage: 200 MG, 2-3 TAB
     Route: 048
  5. NITROFURANTOIN. [Concomitant]
     Active Substance: NITROFURANTOIN
     Dosage: 100 MG CAPS BID (TWICE A DAY)
     Dates: start: 20080722
  6. FLUCONAZOLE. [Concomitant]
     Active Substance: FLUCONAZOLE
     Dosage: 150MG TABLETS 1 Q (EVERY) 24 HOURS
     Dates: start: 20080614
  7. UTIRA [Concomitant]
     Dosage: 1 TID (THREE TIMES A DAY)
     Dates: start: 20080624

REACTIONS (1)
  - Deep vein thrombosis [None]
